FAERS Safety Report 7781682-3 (Version None)
Quarter: 2011Q3

REPORT INFORMATION
  Report Type: 
  Country: None (occurrence: None)
  Receive Date: 20110927
  Receipt Date: 20110915
  Transmission Date: 20111222
  Serious: Yes (Hospitalization)
  Sender: FDA-Public Use
  Company Number: UA-ASTRAZENECA-2011SE55682

PATIENT
  Age: 45 Year
  Sex: Female

DRUGS (7)
  1. QUETIAPINE [Suspect]
     Indication: SCHIZOPHRENIA
     Route: 048
     Dates: start: 20100104, end: 20100110
  2. QUETIAPINE [Suspect]
     Route: 048
     Dates: start: 20100329, end: 20100704
  3. QUETIAPINE [Suspect]
     Route: 048
     Dates: start: 20100705, end: 20100929
  4. QUETIAPINE [Suspect]
     Route: 048
     Dates: start: 20100204, end: 20100304
  5. QUETIAPINE [Suspect]
     Route: 048
     Dates: start: 20100111, end: 20100203
  6. QUETIAPINE [Suspect]
     Route: 048
     Dates: start: 20100305, end: 20100328
  7. QUETIAPINE [Suspect]
     Route: 048
     Dates: start: 20100930, end: 20101018

REACTIONS (1)
  - SCHIZOPHRENIA [None]
